FAERS Safety Report 10771432 (Version 3)
Quarter: 2015Q3

REPORT INFORMATION
  Report Type: Spontaneous
  Country: US (occurrence: US)
  Receive Date: 20150206
  Receipt Date: 20150820
  Transmission Date: 20151125
  Serious: Yes (Death, Other)
  Sender: FDA-Public Use
  Company Number: US-GLAXOSMITHKLINE-US2015GSK015338

PATIENT
  Age: 90 Year
  Sex: Male
  Weight: 68.93 kg

DRUGS (1)
  1. VOTRIENT [Suspect]
     Active Substance: PAZOPANIB HYDROCHLORIDE
     Indication: RENAL CANCER METASTATIC
     Dosage: 200 MG, U
     Dates: start: 201409, end: 201502

REACTIONS (8)
  - Death [Fatal]
  - Mental impairment [Unknown]
  - Confusional state [Unknown]
  - Dementia [Unknown]
  - Performance status decreased [Unknown]
  - Hospice care [Unknown]
  - Disease progression [Unknown]
  - Medication error [Unknown]

NARRATIVE: CASE EVENT DATE: 201503
